FAERS Safety Report 7401865-1 (Version None)
Quarter: 2011Q1

REPORT INFORMATION
  Report Type: 
  Country: None (occurrence: None)
  Receive Date: 20110301
  Receipt Date: 20100611
  Transmission Date: 20110831
  Serious: Yes (Other)
  Sender: FDA-Public Use
  Company Number: US-JNJFOC-20100602896

PATIENT
  Age: 7 Year
  Sex: Female

DRUGS (1)
  1. CHILDREN'S MOTRIN [Suspect]
     Indication: PAIN
     Dosage: 200 MG, 1 IN 1 TOTAL, ORAL
     Route: 048
     Dates: start: 20100607, end: 20100608

REACTIONS (2)
  - ANGIOEDEMA [None]
  - PRODUCT QUALITY ISSUE [None]
